FAERS Safety Report 9337729 (Version 1)
Quarter: 2013Q2

REPORT INFORMATION
  Report Type: Spontaneous
  Country: US (occurrence: US)
  Receive Date: 20130607
  Receipt Date: 20130607
  Transmission Date: 20140414
  Serious: No
  Sender: FDA-Public Use
  Company Number: US-ASTRAZENECA-2013SE36601

PATIENT
  Age: 58 Year
  Sex: Female

DRUGS (2)
  1. ARIMIDEX [Suspect]
     Indication: BREAST CANCER
     Route: 048
     Dates: start: 20130308, end: 20130406
  2. RADIATION THERAPY [Suspect]
     Route: 065
     Dates: end: 20130225

REACTIONS (9)
  - Nervous system disorder [Recovered/Resolved]
  - Tachyphrenia [Recovered/Resolved]
  - Disturbance in attention [Recovered/Resolved]
  - Blood pressure increased [Recovered/Resolved]
  - Depression [Recovered/Resolved]
  - Arthralgia [Recovered/Resolved]
  - Myalgia [Recovered/Resolved]
  - Blood cholesterol increased [Unknown]
  - Asthenia [Recovered/Resolved]
